FAERS Safety Report 5773762-9 (Version None)
Quarter: 2008Q2

REPORT INFORMATION
  Report Type: 
  Country: None (occurrence: None)
  Receive Date: 20080616
  Receipt Date: 20080610
  Transmission Date: 20081010
  Serious: Yes (Hospitalization)
  Sender: FDA-Public Use
  Company Number: FR-WYE-G01667808

PATIENT
  Sex: Male

DRUGS (13)
  1. EFFEXOR [Suspect]
     Indication: DEPRESSION
     Dosage: 150 MG TOTAL DAILY
     Route: 048
     Dates: start: 20080111, end: 20080121
  2. EFFEXOR [Suspect]
     Dosage: 100 MG TOTAL DAILY
     Route: 048
     Dates: start: 20080122, end: 20080205
  3. EFFEXOR [Suspect]
     Dosage: 200 MG TOTAL DAILY
     Route: 048
     Dates: start: 20080206, end: 20080207
  4. EFFEXOR [Suspect]
     Dosage: 300 MG TOTAL DAILY
     Route: 048
     Dates: start: 20080208, end: 20080210
  5. EFFEXOR [Suspect]
     Dosage: 350 MG TOTAL DAILY
     Route: 048
     Dates: start: 20080211, end: 20080211
  6. EFFEXOR [Suspect]
     Dosage: REDUCED DOSE BY STEPS UNTIL DISCONTINUATION
     Route: 048
     Dates: start: 20080212, end: 20080222
  7. KEPPRA [Concomitant]
     Indication: EPILEPSY
  8. CLOMIPRAMINE HYDROCHLORIDE [Suspect]
     Route: 048
     Dates: start: 20080114, end: 20080117
  9. CLOMIPRAMINE HYDROCHLORIDE [Suspect]
     Dosage: VARIABLE DOSES (UNSPECIFIED)
     Route: 042
     Dates: start: 20080118, end: 20080123
  10. CLOMIPRAMINE HYDROCHLORIDE [Suspect]
     Dosage: 150 MG TOTAL DAILY
     Route: 042
     Dates: start: 20080124, end: 20080124
  11. CLOMIPRAMINE HYDROCHLORIDE [Suspect]
     Dosage: 112.5 MG TOTAL DAILY
     Route: 048
     Dates: start: 20080125, end: 20080129
  12. CLOMIPRAMINE HYDROCHLORIDE [Suspect]
     Dosage: 75 MG TOTAL DAILY
     Route: 048
     Dates: start: 20080130, end: 20080207
  13. CLOMIPRAMINE HYDROCHLORIDE [Suspect]
     Route: 048
     Dates: start: 20080208, end: 20080210

REACTIONS (3)
  - FALL [None]
  - MALAISE [None]
  - ORTHOSTATIC HYPOTENSION [None]
